FAERS Safety Report 14675619 (Version 3)
Quarter: 2018Q3

REPORT INFORMATION
  Report Type: Spontaneous
  Country: US (occurrence: US)
  Receive Date: 20180323
  Receipt Date: 20180817
  Transmission Date: 20181010
  Serious: Yes (Other)
  Sender: FDA-Public Use
  Company Number: US-BAYER-2018-050267

PATIENT
  Age: 25 Year
  Sex: Female
  Weight: 118.5 kg

DRUGS (3)
  1. MIRENA [Suspect]
     Active Substance: LEVONORGESTREL
     Indication: GENITAL HAEMORRHAGE
     Dosage: 20 MCG/24HR, CONT
     Route: 015
     Dates: start: 20100428, end: 20180518
  2. MIRENA [Suspect]
     Active Substance: LEVONORGESTREL
     Indication: CONTRACEPTION
     Dosage: 20 MCG/24HR, CONT
     Route: 015
     Dates: start: 20100224
  3. MIRENA [Suspect]
     Active Substance: LEVONORGESTREL
     Indication: CONTRACEPTION
     Dosage: 20 MCG/24HR, CONT
     Route: 015
     Dates: start: 20150518, end: 20180411

REACTIONS (8)
  - Abdominal pain lower [None]
  - Device dislocation [Recovered/Resolved]
  - Renal disorder [None]
  - Pain [None]
  - Flank pain [None]
  - Abdominal pain [None]
  - Device use issue [None]
  - Menorrhagia [None]

NARRATIVE: CASE EVENT DATE: 2010
